FAERS Safety Report 10235816 (Version 1)
Quarter: 2014Q2

REPORT INFORMATION
  Report Type: Spontaneous
  Country: US (occurrence: None)
  Receive Date: 20140612
  Receipt Date: 20140612
  Transmission Date: 20141212
  Serious: No
  Sender: FDA-Public Use
  Company Number: None

PATIENT
  Age: 83 Year
  Sex: Female

DRUGS (6)
  1. REVLIMID 5MG CELGENE [Suspect]
     Indication: PLASMA CELL MYELOMA
     Route: 048
     Dates: start: 201301, end: 201406
  2. ZOLEDRONIC ACID [Concomitant]
  3. ASA [Concomitant]
  4. LISINOPRIL [Concomitant]
  5. CALCITONIN NS [Concomitant]
  6. CALCIUM/VITAMIN D [Concomitant]

REACTIONS (4)
  - Neuropathy peripheral [None]
  - Neutropenia [None]
  - Leukopenia [None]
  - Drug effect decreased [None]
